FAERS Safety Report 10304490 (Version 2)
Quarter: 2014Q3

REPORT INFORMATION
  Report Type: Report from Study
  Country: US (occurrence: US)
  Receive Date: 20140715
  Receipt Date: 20140728
  Transmission Date: 20150326
  Serious: Yes (Other)
  Sender: FDA-Public Use
  Company Number: US-ROCHE-1431593

PATIENT

DRUGS (2)
  1. YTTRIUM-90 [Suspect]
     Active Substance: YTTRIUM Y-90
     Indication: GASTROINTESTINAL CANCER METASTATIC
     Route: 065
  2. CAPECITABINE [Suspect]
     Active Substance: CAPECITABINE
     Indication: COLORECTAL CANCER METASTATIC
     Dosage: FOR 14 DAYS EVERY 21 DAYS
     Route: 048

REACTIONS (1)
  - Gastric perforation [Unknown]
